FAERS Safety Report 5619413-5 (Version None)
Quarter: 2008Q1

REPORT INFORMATION
  Report Type: 
  Country: None (occurrence: None)
  Receive Date: 20080114
  Receipt Date: 20070220
  Transmission Date: 20080703
  Serious: Yes (Other)
  Sender: FDA-Public Use
  Company Number: FEI2006-1064

PATIENT
  Age: 27 Year
  Sex: Female
  Weight: 86.1834 kg

DRUGS (4)
  1. PARAGARD T 380A [Suspect]
     Indication: CONTRACEPTION
     Dosage: INTRA-UTERINE ; INTRA-UTERINE
     Route: 015
     Dates: start: 20030601, end: 20041101
  2. PARAGARD T 380A [Suspect]
     Indication: CONTRACEPTION
     Dosage: INTRA-UTERINE ; INTRA-UTERINE
     Route: 015
     Dates: start: 20051201, end: 20060501
  3. ZOLOFT (SERTRALINE) (UNKNOWN) [Concomitant]
  4. MAXZIDE (DYAZIDE) (UNKNOWN) [Concomitant]

REACTIONS (2)
  - DISCOMFORT [None]
  - ECTOPIC PREGNANCY [None]
